FAERS Safety Report 12188274 (Version 2)
Quarter: 2016Q1

REPORT INFORMATION
  Report Type: Report from Study
  Country: AR (occurrence: AR)
  Receive Date: 20160317
  Receipt Date: 20160329
  Transmission Date: 20160526
  Serious: Yes (Hospitalization, Other)
  Sender: FDA-Public Use
  Company Number: PHHY2016AR034479

PATIENT
  Age: 61 Year
  Sex: Male

DRUGS (1)
  1. ULTIBRO BREEZHALER [Suspect]
     Active Substance: GLYCOPYRRONIUM\INDACATEROL
     Indication: RESPIRATORY DISORDER
     Dosage: QD
     Route: 065

REACTIONS (4)
  - Myocardial infarction [Recovering/Resolving]
  - Lung disorder [Unknown]
  - Embolism [Unknown]
  - Coronary artery occlusion [Recovering/Resolving]

NARRATIVE: CASE EVENT DATE: 201512
